FAERS Safety Report 7089726-1 (Version None)
Quarter: 2010Q4

REPORT INFORMATION
  Report Type: 
  Country: None (occurrence: None)
  Receive Date: 20101108
  Receipt Date: 20100329
  Transmission Date: 20110411
  Serious: No
  Sender: FDA-Public Use
  Company Number: US-ABBOTT-10P-163-0636211-00

PATIENT
  Sex: Male

DRUGS (3)
  1. TRICOR [Suspect]
     Indication: PRODUCT USED FOR UNKNOWN INDICATION
  2. DOXYCYCLINE [Concomitant]
     Indication: ACNE
  3. GEODON [Concomitant]
     Indication: PSYCHOTIC DISORDER

REACTIONS (1)
  - HEPATIC ENZYME INCREASED [None]
